FAERS Safety Report 5317136-3 (Version None)
Quarter: 2007Q2

REPORT INFORMATION
  Report Type: 
  Country: None (occurrence: None)
  Receive Date: 20070504
  Receipt Date: 20070424
  Transmission Date: 20071010
  Serious: Yes (Other)
  Sender: FDA-Public Use
  Company Number: AU-PFIZER INC-2006142322

PATIENT
  Age: 22 Year
  Sex: Female

DRUGS (4)
  1. DEPO-PROVERA [Suspect]
     Indication: CONTRACEPTION
     Dosage: FREQ:FIRST INJECTION
     Route: 030
     Dates: start: 20060301, end: 20060301
  2. DEPO-PROVERA [Suspect]
     Dosage: FREQ:LAST INJECTION
     Route: 030
     Dates: start: 20060601, end: 20060601
  3. ALDACTONE [Suspect]
  4. MINOCYCLINE HCL [Concomitant]
     Indication: ACNE

REACTIONS (27)
  - ACNE [None]
  - ALOPECIA [None]
  - ARTHRALGIA [None]
  - BLOOD TESTOSTERONE INCREASED [None]
  - BREAST PAIN [None]
  - CHILLS [None]
  - DEPRESSION [None]
  - DISTURBANCE IN ATTENTION [None]
  - DIZZINESS [None]
  - FATIGUE [None]
  - GALACTORRHOEA [None]
  - HALLUCINATION [None]
  - HEADACHE [None]
  - HOT FLUSH [None]
  - HYPERHIDROSIS [None]
  - INSOMNIA [None]
  - IRRITABILITY [None]
  - LOSS OF LIBIDO [None]
  - MEMORY IMPAIRMENT [None]
  - MENOMETRORRHAGIA [None]
  - MIGRAINE [None]
  - MOOD SWINGS [None]
  - MUSCLE SPASMS [None]
  - NECK PAIN [None]
  - SEX HORMONE BINDING GLOBULIN INCREASED [None]
  - VISUAL DISTURBANCE [None]
  - VOMITING [None]
